FAERS Safety Report 8460054-2 (Version None)
Quarter: 2012Q2

REPORT INFORMATION
  Report Type: 
  Country: None (occurrence: None)
  Receive Date: 20120622
  Receipt Date: 20120614
  Transmission Date: 20120825
  Serious: Yes (Other)
  Sender: FDA-Public Use
  Company Number: US-ABBOTT-12P-163-0946354-00

PATIENT
  Sex: Female

DRUGS (2)
  1. METHOTREXATE [Suspect]
     Indication: RHEUMATOID ARTHRITIS
     Dates: end: 20120601
  2. HUMIRA [Suspect]
     Indication: PRODUCT USED FOR UNKNOWN INDICATION
     Route: 058
     Dates: start: 20090309, end: 20120601

REACTIONS (5)
  - IMPAIRED HEALING [None]
  - LIP SWELLING [None]
  - PYREXIA [None]
  - LUPUS-LIKE SYNDROME [None]
  - CHEILITIS [None]
